FAERS Safety Report 7823914-9 (Version None)
Quarter: 2011Q4

REPORT INFORMATION
  Report Type: 
  Country: None (occurrence: None)
  Receive Date: 20111019
  Receipt Date: 20111014
  Transmission Date: 20120403
  Serious: Yes (Death, Other)
  Sender: FDA-Public Use
  Company Number: IN-PFIZER INC-2011246598

PATIENT
  Age: 86 Year
  Sex: Female

DRUGS (6)
  1. PHENYTOIN [Suspect]
     Dosage: 100 MG, 3X/DAY
  2. CLOPIDOGREL [Concomitant]
  3. ASPIRIN [Concomitant]
  4. AMLODIPINE [Concomitant]
  5. PRAZOSIN [Concomitant]
  6. PIRACETAM [Concomitant]

REACTIONS (4)
  - RESPIRATORY FAILURE [None]
  - CARDIAC ARREST [None]
  - DRUG RASH WITH EOSINOPHILIA AND SYSTEMIC SYMPTOMS [None]
  - SEPSIS [None]
